FAERS Safety Report 20795757 (Version 3)
Quarter: 2023Q2

REPORT INFORMATION
  Report Type: Spontaneous
  Country: US (occurrence: US)
  Receive Date: 20220506
  Receipt Date: 20230630
  Transmission Date: 20230721
  Serious: Yes (Hospitalization, Other)
  Sender: FDA-Public Use
  Company Number: US-PFIZER INC-202200605995

PATIENT
  Age: 69 Year
  Sex: Female

DRUGS (6)
  1. IBRANCE [Suspect]
     Active Substance: PALBOCICLIB
     Dosage: UNK
     Dates: start: 20201016
  2. IBRANCE [Suspect]
     Active Substance: PALBOCICLIB
     Dosage: 1 TABLET DAILY FOR 21 DAYS, THEN 7 DAYS REST
     Route: 048
     Dates: start: 20211015
  3. FUROSEMIDE [Concomitant]
     Active Substance: FUROSEMIDE
  4. TRAMADOL [Concomitant]
     Active Substance: TRAMADOL
  5. XARELTO [Concomitant]
     Active Substance: RIVAROXABAN
  6. ZOLPIDEM [Concomitant]
     Active Substance: ZOLPIDEM TARTRATE

REACTIONS (3)
  - Pneumonia [Unknown]
  - Paraesthesia [Unknown]
  - Pain in extremity [Unknown]
